FAERS Safety Report 17335869 (Version 1)
Quarter: 2020Q1

REPORT INFORMATION
  Report Type: Spontaneous
  Country: DE (occurrence: DE)
  Receive Date: 20200128
  Receipt Date: 20200128
  Transmission Date: 20200409
  Serious: Yes (Hospitalization)
  Sender: FDA-Public Use
  Company Number: DE-SA-2020SA004141

PATIENT
  Age: 37 Year
  Sex: Female
  Weight: 73 kg

DRUGS (3)
  1. DUPIXENT [Suspect]
     Active Substance: DUPILUMAB
     Indication: NEURODERMATITIS
     Dosage: 300 MG
     Dates: start: 201804, end: 20191205
  2. L-THYROXIN [LEVOTHYROXINE] [Concomitant]
     Active Substance: LEVOTHYROXINE SODIUM
     Indication: BASEDOW^S DISEASE
     Dosage: 1 DF, QD
  3. DUPIXENT [Suspect]
     Active Substance: DUPILUMAB
     Indication: DERMATITIS ATOPIC

REACTIONS (9)
  - Alopecia areata [Not Recovered/Not Resolved]
  - Amenorrhoea [Unknown]
  - Blood lactate dehydrogenase increased [Unknown]
  - C-reactive protein increased [Unknown]
  - Mean cell haemoglobin decreased [Unknown]
  - Blood cholesterol increased [Unknown]
  - Alopecia [Not Recovered/Not Resolved]
  - Eosinophil count increased [Unknown]
  - Alpha 2 globulin increased [Unknown]

NARRATIVE: CASE EVENT DATE: 201906
